FAERS Safety Report 5161622-6 (Version None)
Quarter: 2006Q4

REPORT INFORMATION
  Report Type: 
  Country: None (occurrence: None)
  Receive Date: 20061130
  Receipt Date: 20061120
  Transmission Date: 20070319
  Serious: Yes (Hospitalization)
  Sender: FDA-Public Use
  Company Number: US-BRISTOL-MYERS SQUIBB COMPANY-13585278

PATIENT
  Age: 44 Year
  Sex: Male

DRUGS (4)
  1. ATAZANAVIR [Suspect]
  2. RITONAVIR [Concomitant]
  3. LAMIVUDINE [Concomitant]
  4. TENOFOVIR [Concomitant]

REACTIONS (2)
  - CALCULUS URETERIC [None]
  - LACTIC ACIDOSIS [None]
